FAERS Safety Report 11392159 (Version 2)
Quarter: 2015Q4

REPORT INFORMATION
  Report Type: Spontaneous
  Country: US (occurrence: US)
  Receive Date: 20150818
  Receipt Date: 20151002
  Transmission Date: 20160304
  Serious: Yes (Other)
  Sender: FDA-Public Use
  Company Number: US-PFIZER INC-2015271750

PATIENT
  Age: 73 Year
  Sex: Female
  Weight: 118 kg

DRUGS (10)
  1. ALLOPURINOL. [Suspect]
     Active Substance: ALLOPURINOL
     Indication: GOUT
     Dosage: 300 MG, UNK
     Dates: start: 20150531, end: 201508
  2. PRISTIQ EXTENDED RELEASE [Interacting]
     Active Substance: DESVENLAFAXINE SUCCINATE
     Indication: DEPRESSION
     Dosage: UNK
     Dates: start: 2014
  3. SYNTHROID [Interacting]
     Active Substance: LEVOTHYROXINE SODIUM
     Indication: HYPOTHYROIDISM
     Dosage: 75 MG, 1X/DAY
  4. MELATONIN [Concomitant]
     Active Substance: MELATONIN
     Indication: INSOMNIA
     Dosage: 5 MG, UNK
  5. PROTONIX [Interacting]
     Active Substance: PANTOPRAZOLE SODIUM
     Indication: HIATUS HERNIA
  6. TYLENOL [Concomitant]
     Active Substance: ACETAMINOPHEN
     Indication: ARTHRALGIA
     Dosage: UNK
  7. ZYRTEC [Concomitant]
     Active Substance: CETIRIZINE HYDROCHLORIDE
     Indication: HYPERSENSITIVITY
     Dosage: 10 MG, 1X/DAY (AT NIGHT )
  8. PRISTIQ EXTENDED RELEASE [Interacting]
     Active Substance: DESVENLAFAXINE SUCCINATE
     Dosage: 50 MG, 1X/DAY
     Dates: start: 20150531
  9. PROTONIX [Interacting]
     Active Substance: PANTOPRAZOLE SODIUM
     Indication: GASTROOESOPHAGEAL REFLUX DISEASE
     Dosage: 40 MG, 1X/DAY
  10. VALSARTAN. [Interacting]
     Active Substance: VALSARTAN
     Indication: HYPERTENSION
     Dosage: 320 MG, UNK

REACTIONS (6)
  - Haematochezia [Recovered/Resolved]
  - Blood urine present [Recovered/Resolved]
  - Abdominal pain [Not Recovered/Not Resolved]
  - Nausea [Not Recovered/Not Resolved]
  - Abdominal discomfort [Not Recovered/Not Resolved]
  - Drug interaction [Unknown]

NARRATIVE: CASE EVENT DATE: 2015
